FAERS Safety Report 23404279 (Version 1)
Quarter: 2024Q1

REPORT INFORMATION
  Report Type: Spontaneous
  Country: CA (occurrence: CA)
  Receive Date: 20240116
  Receipt Date: 20240116
  Transmission Date: 20240409
  Serious: Yes (Hospitalization)
  Sender: FDA-Public Use
  Company Number: CA-CHEPLA-2024000438

PATIENT
  Age: 35 Year
  Sex: Female

DRUGS (17)
  1. CLONAZEPAM [Suspect]
     Active Substance: CLONAZEPAM
  2. QUETIAPINE [Suspect]
     Active Substance: QUETIAPINE
  3. PRAZOSIN [Suspect]
     Active Substance: PRAZOSIN
  4. LEVOTHYROXINE [Suspect]
     Active Substance: LEVOTHYROXINE
  5. DEXTROAMPHET SACCHARAT, AMPHET ASPARTATE, DEXTROAMPHET SULFATE AND AMP [Suspect]
     Active Substance: AMPHETAMINE ASPARTATE\AMPHETAMINE ASPARTATE MONOHYDRATE\AMPHETAMINE SULFATE\DEXTROAMPHETAMINE SACCHA
  6. PROPRANOLOL [Suspect]
     Active Substance: PROPRANOLOL HYDROCHLORIDE
  7. TEMAZEPAM [Suspect]
     Active Substance: TEMAZEPAM
  8. UNSPECIFIED INGREDIENT [Suspect]
     Active Substance: UNSPECIFIED INGREDIENT
     Route: 048
  9. UNSPECIFIED INGREDIENT [Suspect]
     Active Substance: UNSPECIFIED INGREDIENT
     Dosage: DAILY DOSE: 50 MILLIGRAM
     Route: 048
  10. METHAMPHETAMINE [Suspect]
     Active Substance: METHAMPHETAMINE
  11. COCAINE [Suspect]
     Active Substance: COCAINE
  12. FENTANYL [Suspect]
     Active Substance: FENTANYL\FENTANYL CITRATE
  13. METHADONE [Suspect]
     Active Substance: METHADONE HYDROCHLORIDE
     Dosage: DAILY DOSE: 150 MILLIGRAM
     Route: 048
  14. METHADONE [Suspect]
     Active Substance: METHADONE HYDROCHLORIDE
     Dosage: DAILY DOSE: 70 MILLIGRAM
     Route: 048
  15. MORPHINE [Suspect]
     Active Substance: MORPHINE
     Dosage: SLOW RELEASE?DAILY DOSE: 200 MILLIGRAM
     Route: 048
  16. MORPHINE [Suspect]
     Active Substance: MORPHINE
     Dosage: EVERY 4 HOURS AS NEEDED
     Route: 048
  17. ALCOHOL [Suspect]
     Active Substance: ALCOHOL

REACTIONS (10)
  - Suicidal ideation [Recovering/Resolving]
  - Arthralgia [Unknown]
  - Myalgia [Unknown]
  - Abdominal pain upper [Unknown]
  - Restlessness [Unknown]
  - Mydriasis [Unknown]
  - Piloerection [Unknown]
  - Anxiety [Unknown]
  - Mental disorder [Unknown]
  - Substance use disorder [Unknown]
